FAERS Safety Report 7337325-6 (Version None)
Quarter: 2011Q1

REPORT INFORMATION
  Report Type: 
  Country: None (occurrence: None)
  Receive Date: 20110308
  Receipt Date: 20110222
  Transmission Date: 20110831
  Serious: Yes (Death)
  Sender: FDA-Public Use
  Company Number: US-RANBAXY-2011US-42760

PATIENT
  Age: 16 Year
  Sex: Male

DRUGS (6)
  1. MARIJUANA [Suspect]
     Indication: PRODUCT USED FOR UNKNOWN INDICATION
     Dosage: UNK, UNK
     Route: 048
  2. AMPHETAMINE [Suspect]
     Indication: PRODUCT USED FOR UNKNOWN INDICATION
     Dosage: UNK
     Route: 048
  3. HYDROCODONE BITARTRATE AND ACETAMINOPHEN [Suspect]
     Indication: PRODUCT USED FOR UNKNOWN INDICATION
     Dosage: UNK, UNK
     Route: 048
  4. COCAINE [Suspect]
     Indication: PRODUCT USED FOR UNKNOWN INDICATION
     Dosage: UNK, UNK
     Route: 048
  5. METHYLENEDIOXY METHAMPHETAMINE [Suspect]
     Indication: PRODUCT USED FOR UNKNOWN INDICATION
     Dosage: UNK, UNK
     Route: 048
  6. METHAMPHETAMINE [Suspect]
     Indication: PRODUCT USED FOR UNKNOWN INDICATION
     Dosage: UNK, UNK
     Route: 048

REACTIONS (10)
  - RHABDOMYOLYSIS [None]
  - SEROTONIN SYNDROME [None]
  - HYPERTHERMIA MALIGNANT [None]
  - HYPOXIC-ISCHAEMIC ENCEPHALOPATHY [None]
  - MULTIPLE DRUG OVERDOSE [None]
  - HYPOGLYCAEMIA [None]
  - DRUG ABUSE [None]
  - SHOCK [None]
  - HEPATORENAL FAILURE [None]
  - DISSEMINATED INTRAVASCULAR COAGULATION [None]
